FAERS Safety Report 19475640 (Version 1)
Quarter: 2021Q2

REPORT INFORMATION
  Report Type: Spontaneous
  Country: AU (occurrence: AU)
  Receive Date: 20210630
  Receipt Date: 20210630
  Transmission Date: 20210717
  Serious: Yes (Hospitalization)
  Sender: FDA-Public Use
  Company Number: AU-SA-2021SA212878

PATIENT
  Age: 7 Day
  Sex: Female
  Weight: 2.6 kg

DRUGS (1)
  1. CEREZYME [Suspect]
     Active Substance: IMIGLUCERASE
     Dosage: 3200 IU, QOW
     Route: 065
     Dates: end: 20210301

REACTIONS (3)
  - Weight decreased [Unknown]
  - Foetal exposure during pregnancy [Unknown]
  - Jaundice [Unknown]

NARRATIVE: CASE EVENT DATE: 202103
